FAERS Safety Report 12838077 (Version 1)
Quarter: 2016Q4

REPORT INFORMATION
  Report Type: Spontaneous
  Country: DE (occurrence: DE)
  Receive Date: 20161012
  Receipt Date: 20161012
  Transmission Date: 20170207
  Serious: Yes (Other)
  Sender: FDA-Public Use
  Company Number: DE-SUN PHARMACEUTICAL INDUSTRIES LTD-2016RR-125427

PATIENT
  Sex: Female
  Weight: 80 kg

DRUGS (10)
  1. SERTRALINE [Suspect]
     Active Substance: SERTRALINE HYDROCHLORIDE
     Indication: DEPRESSION
     Dosage: 100 [MG/D (-75 MG/D)]/SINCE 2014, IN GW 13 1/7 (JUNE 2015) INCREASED TO 100 MG/D, 0.-19.1. GESTATION
     Route: 048
     Dates: start: 20150315, end: 20150727
  2. TAVOR (LORAZEPAM) [Concomitant]
     Active Substance: LORAZEPAM
     Indication: PANIC ATTACK
     Dosage: 0.5 MG, QD (0.5 [MG/D]/AS NEEDED, 1-2 TIMES/WK, 0.-19.1 GESTATIONAL WEEK
     Route: 048
     Dates: start: 20150315, end: 20150727
  3. PROMETHAZINE [Concomitant]
     Active Substance: PROMETHAZINE\PROMETHAZINE HYDROCHLORIDE
     Indication: PANIC ATTACK
     Dosage: 25 [MG/D]-? SINCE MARCH 2014, AS NEEDED, MAX 3 TIMES/WK, 0.-9. GESTATIONAL WEEK
     Route: 048
  4. KONTRACEPTIVUM [Concomitant]
     Indication: ORAL CONTRACEPTION
     Dosage: ^MINIPILLE^, TRIMESTER: 1ST
     Route: 048
  5. FOLIO [Concomitant]
     Active Substance: FOLIC ACID
     Indication: PROPHYLAXIS OF NEURAL TUBE DEFECT
     Dosage: 0.4 MG, QD, 5.-6. GESTATIONAL WEEK
     Route: 048
  6. UNACID [Concomitant]
     Active Substance: AMPICILLIN SODIUM\SULBACTAM SODIUM
     Indication: PYELONEPHRITIS
     Dosage: 18.2.-18.3. GESTATIONAL WEEK
     Route: 065
     Dates: start: 20150721, end: 20150722
  7. VALDOXAN [Suspect]
     Active Substance: AGOMELATINE
     Indication: DEPRESSION
     Dosage: 25 MG, QD, 0.-19.1 GESTATIONAL WEEK
     Route: 048
     Dates: start: 20150315, end: 20150727
  8. IBUPROFEN. [Concomitant]
     Active Substance: IBUPROFEN
     Indication: PAIN
     Dosage: AS NEEDED, CIRCA ONCE/WEEK, 0.-19.1. GESTATIONAL WEEK
     Route: 048
     Dates: start: 20150315, end: 20150727
  9. AGYRAX [Concomitant]
     Active Substance: MECLIZINE HYDROCHLORIDE
     Indication: NAUSEA
     Dosage: STARTED AT THE BEGINNING OF MAY 2015, 6.5.-14.4 GESTATIONAL WEEK
     Route: 048
     Dates: start: 20150501, end: 20150625
  10. CEFUROXIME. [Concomitant]
     Active Substance: CEFUROXIME
     Indication: PROPHYLAXIS URINARY TRACT INFECTION
     Dosage: 1.5 [G/D]/DURING HOSPITAL STAY PRESCRIBED FOR 6 TO 8 WEEKS, 18.3-19.1. GESTATIONAL WEEK
     Route: 042
     Dates: start: 20150722, end: 20150727

REACTIONS (4)
  - Abortion late [Recovered/Resolved]
  - Retroplacental haematoma [Recovered/Resolved]
  - Pyrexia [Recovered/Resolved]
  - Pyelonephritis [Recovered/Resolved]
